FAERS Safety Report 12782759 (Version 1)
Quarter: 2016Q3

REPORT INFORMATION
  Report Type: Spontaneous
  Country: US (occurrence: US)
  Receive Date: 20160926
  Receipt Date: 20160926
  Transmission Date: 20161109
  Serious: No
  Sender: FDA-Public Use
  Company Number: None

PATIENT
  Age: 35 Year
  Sex: Male
  Weight: 112.5 kg

DRUGS (5)
  1. HYOSCYAMINE SULF 0.125 MG TAB VIRTUS PHARMACE [Suspect]
     Active Substance: HYOSCYAMINE SULFATE
     Indication: MUSCLE SPASMS
     Route: 048
     Dates: start: 20160817, end: 20160823
  2. TYLENOL [Concomitant]
     Active Substance: ACETAMINOPHEN
  3. HYOSCYAMINE SULF 0.125 MG TAB VIRTUS PHARMACE [Suspect]
     Active Substance: HYOSCYAMINE SULFATE
     Indication: GALLBLADDER DISORDER
     Route: 048
     Dates: start: 20160817, end: 20160823
  4. TRAMADOL. [Concomitant]
     Active Substance: TRAMADOL
  5. IBUPROFEN. [Concomitant]
     Active Substance: IBUPROFEN

REACTIONS (7)
  - Vision blurred [None]
  - Dizziness [None]
  - Heart rate increased [None]
  - Dry mouth [None]
  - Gallbladder disorder [None]
  - Pain [None]
  - Product use issue [None]

NARRATIVE: CASE EVENT DATE: 20160822
